FAERS Safety Report 7720216-6 (Version None)
Quarter: 2011Q3

REPORT INFORMATION
  Report Type: 
  Country: None (occurrence: None)
  Receive Date: 20110831
  Receipt Date: 20110817
  Transmission Date: 20111222
  Serious: Yes (Hospitalization, Other)
  Sender: FDA-Public Use
  Company Number: FI-AMGEN-FINSP2011021793

PATIENT
  Sex: Male

DRUGS (1)
  1. NPLATE [Suspect]
     Indication: PRODUCT USED FOR UNKNOWN INDICATION
     Dosage: 7 MUG/KG, UNK

REACTIONS (5)
  - INFECTION [None]
  - PLATELET COUNT ABNORMAL [None]
  - PULMONARY EMBOLISM [None]
  - LUNG NEOPLASM [None]
  - PLATELET COUNT DECREASED [None]
